FAERS Safety Report 18904365 (Version 1)
Quarter: 2021Q1

REPORT INFORMATION
  Report Type: Spontaneous
  Country: US (occurrence: US)
  Receive Date: 20210217
  Receipt Date: 20210217
  Transmission Date: 20210420
  Serious: Yes (Hospitalization)
  Sender: FDA-Public Use
  Company Number: US-MYLANLABS-2021M1009686

PATIENT
  Age: 38 Year
  Sex: Male

DRUGS (7)
  1. PROPOFOL. [Concomitant]
     Active Substance: PROPOFOL
     Indication: SEDATION
     Dosage: MONITORED ANESTHESIA CARE...
     Route: 065
  2. MARCAINE [Suspect]
     Active Substance: BUPIVACAINE HYDROCHLORIDE
     Indication: SPINAL ANAESTHESIA
     Dosage: 2.5 MILLILITER SPINAL...
     Route: 037
  3. EPINEPHRINE. [Concomitant]
     Active Substance: EPINEPHRINE
     Indication: PRODUCT USED FOR UNKNOWN INDICATION
     Dosage: 200 MICROGRAM ADMINISTERED...
     Route: 037
  4. EPINEPHRINE. [Concomitant]
     Active Substance: EPINEPHRINE
     Dosage: 1: 200K EPINEPHRINE TO....
     Route: 037
  5. CLONIDINE. [Suspect]
     Active Substance: CLONIDINE
     Indication: NEUROMUSCULAR BLOCKING THERAPY
     Dosage: 1.67 MCG/ML; SPINAL...
     Route: 037
  6. MARCAINE [Suspect]
     Active Substance: BUPIVACAINE HYDROCHLORIDE
     Indication: NEUROMUSCULAR BLOCKING THERAPY
     Dosage: 25 MILLILITER SPINAL ANAESTHESIA...
     Route: 037
  7. SUBLIMAZE [Suspect]
     Active Substance: FENTANYL CITRATE
     Indication: SPINAL ANAESTHESIA
     Dosage: 20 MICROGRAM SPINAL...
     Route: 037

REACTIONS (3)
  - Anaesthetic complication [Recovering/Resolving]
  - Lumbosacral radiculopathy [Recovering/Resolving]
  - Off label use [Unknown]
